FAERS Safety Report 11197852 (Version 1)
Quarter: 2015Q2

REPORT INFORMATION
  Report Type: Spontaneous
  Country: JP (occurrence: JP)
  Receive Date: 20150617
  Receipt Date: 20150617
  Transmission Date: 20150821
  Serious: Yes (Other)
  Sender: FDA-Public Use
  Company Number: PHJP2015JP009378

PATIENT
  Age: 37 Year
  Sex: Female
  Weight: 52 kg

DRUGS (1)
  1. OCTREOTIDE [Suspect]
     Active Substance: OCTREOTIDE
     Indication: THYROID STIMULATING HORMONE-PRODUCING PITUITARY TUMOUR
     Dosage: 10 MG, QMO
     Route: 065

REACTIONS (2)
  - Basedow^s disease [Unknown]
  - Off label use [Unknown]
